FAERS Safety Report 7629366-6 (Version None)
Quarter: 2011Q3

REPORT INFORMATION
  Report Type: 
  Country: None (occurrence: None)
  Receive Date: 20110722
  Receipt Date: 20110715
  Transmission Date: 20111222
  Serious: Yes (Life-Threatening, Hospitalization)
  Sender: FDA-Public Use
  Company Number: US-JNJFOC-20110706958

PATIENT
  Age: 38 Year
  Sex: Male

DRUGS (2)
  1. ANTICONVULSANT, NOS [Suspect]
     Indication: PRODUCT USED FOR UNKNOWN INDICATION
  2. ULTRAM [Suspect]
     Indication: PRODUCT USED FOR UNKNOWN INDICATION

REACTIONS (14)
  - ALCOHOL WITHDRAWAL SYNDROME [None]
  - HYPOKALAEMIA [None]
  - AGITATION [None]
  - BLOOD ALKALINE PHOSPHATASE INCREASED [None]
  - MULTIPLE DRUG OVERDOSE [None]
  - METABOLIC ALKALOSIS [None]
  - MUSCULOSKELETAL PAIN [None]
  - ALANINE AMINOTRANSFERASE INCREASED [None]
  - CONVULSION [None]
  - BODY TEMPERATURE INCREASED [None]
  - HEART RATE INCREASED [None]
  - BLOOD CREATINE PHOSPHOKINASE INCREASED [None]
  - DRUG ABUSE [None]
  - ASPARTATE AMINOTRANSFERASE INCREASED [None]
